FAERS Safety Report 25009660 (Version 1)
Quarter: 2025Q1

REPORT INFORMATION
  Report Type: Report from Study
  Country: IT (occurrence: IT)
  Receive Date: 20250225
  Receipt Date: 20250225
  Transmission Date: 20250408
  Serious: Yes (Hospitalization)
  Sender: ROCHE
  Company Number: IT-ROCHE-10000211529

PATIENT
  Age: 43 Year
  Sex: Female

DRUGS (15)
  1. OCRELIZUMAB [Suspect]
     Active Substance: OCRELIZUMAB
     Indication: Multiple sclerosis
     Route: 065
     Dates: end: 20240603
  2. FUROSEMIDE [Concomitant]
     Active Substance: FUROSEMIDE
  3. SPIRONOLACTONE [Concomitant]
     Active Substance: SPIRONOLACTONE
     Dates: start: 20250114
  4. EDOXABAN TOSYLATE [Concomitant]
     Active Substance: EDOXABAN TOSYLATE
  5. PREDNISONE [Concomitant]
     Active Substance: PREDNISONE
  6. LACOSAMIDE [Concomitant]
     Active Substance: LACOSAMIDE
  7. BACLOFEN [Concomitant]
     Active Substance: BACLOFEN
  8. ADEMETIONINE [Concomitant]
     Active Substance: ADEMETIONINE
  9. LEVOTHYROXINE [Concomitant]
     Active Substance: LEVOTHYROXINE
  10. PANTOPRAZOLE [Concomitant]
     Active Substance: PANTOPRAZOLE
  11. LACTULOSE [Concomitant]
     Active Substance: LACTULOSE
  12. VASELINE OIL [Concomitant]
  13. SORBICLIS [Concomitant]
  14. RETACRIT [Concomitant]
     Active Substance: EPOETIN ALFA-EPBX
  15. FERROUS SULFATE [Concomitant]
     Active Substance: FERROUS SULFATE

REACTIONS (2)
  - Pneumonia [Unknown]
  - Endometrial adenocarcinoma [Unknown]
